FAERS Safety Report 8123614-4 (Version None)
Quarter: 2012Q1

REPORT INFORMATION
  Report Type: 
  Country: None (occurrence: None)
  Receive Date: 20120208
  Receipt Date: 20120203
  Transmission Date: 20120608
  Serious: Yes (Other)
  Sender: FDA-Public Use
  Company Number: PHEH2012US002437

PATIENT
  Sex: Female

DRUGS (2)
  1. EXJADE [Suspect]
     Indication: ACUTE MYELOID LEUKAEMIA
     Dosage: 1500 MG, QD
     Route: 048
  2. EXJADE [Suspect]
     Dosage: 1500 MG, QD
     Route: 048

REACTIONS (2)
  - MIDDLE EAR EFFUSION [None]
  - INFECTION [None]
